FAERS Safety Report 9257946 (Version 1)
Quarter: 2013Q2

REPORT INFORMATION
  Report Type: Spontaneous
  Country: US (occurrence: US)
  Receive Date: 20130426
  Receipt Date: 20130426
  Transmission Date: 20140414
  Serious: No
  Sender: FDA-Public Use
  Company Number: US-TEVA-400972USA

PATIENT
  Age: 38 Year
  Sex: Female

DRUGS (2)
  1. PROAIR HFA [Suspect]
     Route: 055
  2. QVAR [Concomitant]

REACTIONS (2)
  - Migraine [Not Recovered/Not Resolved]
  - Tinnitus [Not Recovered/Not Resolved]
